FAERS Safety Report 5017952-1 (Version None)
Quarter: 2006Q2

REPORT INFORMATION
  Report Type: 
  Country: None (occurrence: None)
  Receive Date: 20060605
  Receipt Date: 20060420
  Transmission Date: 20061013
  Serious: Yes (Life-Threatening, Hospitalization)
  Sender: FDA-Public Use
  Company Number: JP-JPN-A200601310

PATIENT
  Age: 30 Year
  Sex: Female
  Weight: 46 kg

DRUGS (6)
  1. ZOVIRAX [Suspect]
     Indication: HERPES SIMPLEX
     Dosage: 250MG THREE TIMES PER DAY
     Route: 042
     Dates: start: 20060411, end: 20060412
  2. PANSPORIN [Suspect]
     Indication: DRUG USE FOR UNKNOWN INDICATION
     Dosage: 1G TWICE PER DAY
     Route: 042
     Dates: start: 20060410, end: 20060412
  3. BAKTAR [Suspect]
     Route: 048
     Dates: start: 20060412, end: 20060423
  4. PREDONINE [Concomitant]
     Indication: SYSTEMIC LUPUS ERYTHEMATOSUS
     Dosage: 5MG PER DAY
     Route: 042
     Dates: start: 20060410, end: 20060411
  5. PRIMPERAN TAB [Concomitant]
     Indication: VOMITING
     Dosage: 10MG PER DAY
     Route: 042
     Dates: start: 20060410, end: 20060411
  6. PREDONINE [Concomitant]
     Route: 048
     Dates: start: 20060415

REACTIONS (6)
  - FEELING ABNORMAL [None]
  - OXYGEN SATURATION DECREASED [None]
  - PNEUMOCYSTIS JIROVECI PNEUMONIA [None]
  - PNEUMONIA [None]
  - PULMONARY ALVEOLAR HAEMORRHAGE [None]
  - WHITE BLOOD CELL COUNT DECREASED [None]
